FAERS Safety Report 11403935 (Version 2)
Quarter: 2015Q3

REPORT INFORMATION
  Report Type: Report from Study
  Country: US (occurrence: US)
  Receive Date: 20150821
  Receipt Date: 20150901
  Transmission Date: 20151125
  Serious: No
  Sender: FDA-Public Use
  Company Number: US-AMGEN-USASP2015083361

PATIENT
  Age: 33 Year
  Sex: Female

DRUGS (1)
  1. ENBREL [Suspect]
     Active Substance: ETANERCEPT
     Indication: PSORIASIS
     Dosage: 50 MG, QWK
     Route: 065

REACTIONS (7)
  - Injection site reaction [Unknown]
  - Peripheral swelling [Unknown]
  - Pregnancy [Unknown]
  - Psoriasis [Unknown]
  - Injection site pain [Unknown]
  - Contusion [Unknown]
  - Pain in extremity [Unknown]
